FAERS Safety Report 8505629-7 (Version None)
Quarter: 2012Q3

REPORT INFORMATION
  Report Type: 
  Country: None (occurrence: None)
  Receive Date: 20120712
  Receipt Date: 20120709
  Transmission Date: 20120928
  Serious: Yes (Life-Threatening, Hospitalization)
  Sender: FDA-Public Use
  Company Number: US-ROXANE LABORATORIES, INC.-2012-RO-00887RO

PATIENT
  Age: 56 Year
  Sex: Female
  Weight: 81 kg

DRUGS (42)
  1. PREDNISONE [Suspect]
     Dosage: 40 MG
     Route: 048
     Dates: start: 20111005, end: 20111011
  2. PREDNISONE [Suspect]
     Dosage: 4 MG
     Route: 048
     Dates: start: 20111201, end: 20111207
  3. CALCIUM WITH D [Concomitant]
     Indication: MINERAL SUPPLEMENTATION
     Dates: start: 20050101
  4. DICLOFENAC SODIUM [Concomitant]
     Indication: ARTHRALGIA
     Dosage: 2 MG
     Dates: start: 20100101
  5. FUROSEMIDE [Concomitant]
     Indication: DIURETIC THERAPY
     Dosage: 20 MG
     Dates: start: 20050101
  6. PANTOPRAZOLE SODIUM SESQUIHYDRATE [Concomitant]
     Indication: ABDOMINAL DISCOMFORT
     Dosage: 80 MG
     Dates: start: 20111208
  7. MYCOPHENOLATE MOFETIL [Concomitant]
     Dates: start: 20080101
  8. PREDNISONE [Suspect]
     Dosage: 50 MG
     Route: 048
     Dates: start: 20110928, end: 20111004
  9. PREDNISONE [Suspect]
     Dosage: 30 MG
     Route: 048
     Dates: start: 20111012, end: 20111018
  10. PREDNISONE [Suspect]
     Dosage: 15 NR
     Route: 048
     Dates: start: 20111026, end: 20111101
  11. PROMETHAZINE [Concomitant]
     Indication: NAUSEA
     Dates: start: 20090101
  12. LORAZEPAM [Concomitant]
     Indication: ANXIETY
     Dates: start: 20111013
  13. AMLODIPINE MALEATE [Concomitant]
     Indication: HYPERTENSION
     Dosage: 10 MG
     Dates: start: 20111209, end: 20120117
  14. AMLODIPINE MALEATE [Concomitant]
     Dosage: 5 MG
     Dates: start: 20120118, end: 20120202
  15. PREDNISONE [Suspect]
     Dosage: 20 MG
     Route: 048
     Dates: start: 20111019, end: 20111025
  16. PREDNISONE [Suspect]
     Dosage: 1 MG
     Route: 048
     Dates: start: 20111222, end: 20111228
  17. LISINOPRIL [Concomitant]
     Indication: HYPERTENSION
     Dosage: 30 MG
     Dates: start: 20030101
  18. METOPROLOL TARTRATE [Concomitant]
     Indication: BLOOD PRESSURE
     Dosage: 200 MG
     Dates: start: 20111108
  19. PREDNISONE [Suspect]
     Dosage: 12.5 MG
     Route: 048
     Dates: start: 20111102, end: 20111108
  20. PREDNISONE [Suspect]
     Dosage: 5 MG
     Route: 048
     Dates: start: 20111124, end: 20111130
  21. PREDNISONE [Suspect]
     Dosage: 3 MG
     Route: 048
     Dates: start: 20111208, end: 20111214
  22. PREDNISONE [Suspect]
     Dosage: 2 MG
     Route: 048
     Dates: start: 20111215, end: 20111221
  23. HUMIRA [Suspect]
     Route: 058
     Dates: start: 20120229
  24. MYCOPHENOLATE MOFETIL [Concomitant]
     Indication: UVEITIS
     Dosage: 2000 MG
     Route: 048
     Dates: start: 20101024, end: 20110601
  25. PREDNISONE [Suspect]
     Dosage: 10 MG
     Route: 048
     Dates: start: 20111109, end: 20111116
  26. HUMIRA [Suspect]
     Indication: UVEITIS
     Route: 058
     Dates: start: 20110914, end: 20120208
  27. LORATADINE [Concomitant]
     Indication: HYPERSENSITIVITY
     Dosage: 10 MG
     Dates: start: 20030101
  28. ROSUVASTATIN [Concomitant]
     Indication: HYPERLIPIDAEMIA
     Dosage: 40 MG
     Dates: start: 20100101
  29. CEFIXIME [Concomitant]
     Indication: BACK PAIN
     Dates: start: 20040101
  30. ESTRADIOL [Concomitant]
     Indication: OESTROGEN REPLACEMENT THERAPY
     Dates: start: 20090101
  31. SERTRALINE HYDROCHLORIDE [Concomitant]
     Indication: DEPRESSION
     Dosage: 25 MG
     Dates: start: 20080101
  32. TRAMADOL HCL [Concomitant]
     Indication: ARTHRALGIA
     Dates: start: 20060101
  33. CYCLOBENZAPRINE HCL [Concomitant]
     Indication: BACK PAIN
     Dates: start: 20040101
  34. PREDNISONE [Suspect]
     Dosage: 7.5 MG
     Route: 048
     Dates: start: 20111117, end: 20111123
  35. GABAPENTIN [Concomitant]
     Indication: ARTHRALGIA
     Dosage: 1800 MG
     Dates: start: 20100101, end: 20120509
  36. FOLIC ACID [Concomitant]
     Indication: VITAMIN SUPPLEMENTATION
     Dosage: 1 MG
     Dates: start: 20040101
  37. FUROSEMIDE [Concomitant]
     Indication: HYPERTENSION
  38. PREDNISONE [Suspect]
     Indication: UVEITIS
     Dosage: 60 MG
     Route: 048
     Dates: start: 20110914, end: 20110927
  39. KETOROLAC TROMETHAMINE [Concomitant]
     Indication: UVEITIS
     Route: 061
     Dates: start: 20081015
  40. MYCOPHENOLATE MOFETIL [Concomitant]
     Dosage: 500 MG
     Dates: start: 20080101
  41. BUPROPION HYDROCHLORIDE [Concomitant]
     Indication: DEPRESSION
     Dosage: 200 MG
     Dates: start: 20030101
  42. VICODIN [Concomitant]
     Indication: HEADACHE
     Dates: start: 20111020

REACTIONS (1)
  - GASTROENTERITIS VIRAL [None]
